FAERS Safety Report 25622499 (Version 1)
Quarter: 2025Q3

REPORT INFORMATION
  Report Type: Spontaneous
  Country: CN (occurrence: CN)
  Receive Date: 20250730
  Receipt Date: 20250730
  Transmission Date: 20251021
  Serious: Yes (Other)
  Sender: PFIZER
  Company Number: CN-PFIZER INC-PV202500089886

PATIENT
  Age: 66 Year
  Sex: Female
  Weight: 72 kg

DRUGS (3)
  1. IRINOTECAN HYDROCHLORIDE [Suspect]
     Active Substance: IRINOTECAN HYDROCHLORIDE
     Indication: Adenocarcinoma gastric
     Dates: start: 20220827, end: 20230203
  2. RIVOCERANIB [Suspect]
     Active Substance: RIVOCERANIB
     Indication: Adenocarcinoma gastric
     Dates: start: 20220827, end: 20230203
  3. PEMBROLIZUMAB [Suspect]
     Active Substance: PEMBROLIZUMAB
     Indication: Adenocarcinoma gastric
     Dates: start: 20220827, end: 20230203

REACTIONS (2)
  - Immune-mediated hepatitis [Recovered/Resolved]
  - Off label use [Unknown]

NARRATIVE: CASE EVENT DATE: 20220827
